FAERS Safety Report 7360419-6 (Version None)
Quarter: 2011Q1

REPORT INFORMATION
  Report Type: 
  Country: None (occurrence: None)
  Receive Date: 20110318
  Receipt Date: 20101228
  Transmission Date: 20110831
  Serious: Yes (Hospitalization, Other)
  Sender: FDA-Public Use
  Company Number: US-BAYER-201039692NA

PATIENT
  Sex: Female
  Weight: 160 kg

DRUGS (17)
  1. UNCODEABLE ^UNCLASSIFIABLE^ [Concomitant]
  2. VASOTEC [Concomitant]
  3. ULTRACET [Concomitant]
  4. ENABLEX [Concomitant]
  5. TESSALON [Concomitant]
  6. HYDROCODONE [Concomitant]
  7. IBUPROFEN [Concomitant]
  8. EXCEDRIN (MIGRAINE) [Concomitant]
  9. NITROGLYCERIN [Concomitant]
  10. PROPOFOL [Concomitant]
  11. ZOFRAN [Concomitant]
  12. YASMIN [Suspect]
     Indication: CONTRACEPTION
     Route: 048
     Dates: start: 20000101, end: 20070901
  13. HUMALOG [Concomitant]
     Indication: DIABETES MELLITUS
     Dosage: UNK
     Dates: start: 20000101
  14. VESICARE [Concomitant]
     Indication: INCONTINENCE
     Dosage: UNK
     Dates: start: 20060101, end: 20090101
  15. YAZ [Suspect]
  16. VICODIN [Concomitant]
  17. PERCOCET [Concomitant]

REACTIONS (2)
  - PULMONARY EMBOLISM [None]
  - DEEP VEIN THROMBOSIS [None]
